FAERS Safety Report 5531328-X (Version None)
Quarter: 2007Q4

REPORT INFORMATION
  Report Type: 
  Country: None (occurrence: None)
  Receive Date: 20071128
  Receipt Date: 20071116
  Transmission Date: 20080405
  Serious: Yes (Other)
  Sender: FDA-Public Use
  Company Number: CHNY2007GB03793

PATIENT
  Sex: Female

DRUGS (3)
  1. NICOTINE [Suspect]
     Indication: SMOKING CESSATION THERAPY
     Dosage: CHEWED
  2. NICOTINE [Suspect]
     Indication: SMOKING CESSATION THERAPY
     Dosage: INHALATION
     Route: 055
  3. SOLIAN(AMISULPRIDE) [Suspect]

REACTIONS (2)
  - DRUG INTERACTION [None]
  - HALLUCINATION, AUDITORY [None]
